FAERS Safety Report 6118823-X (Version None)
Quarter: 2009Q1

REPORT INFORMATION
  Report Type: 
  Country: None (occurrence: None)
  Receive Date: 20090316
  Receipt Date: 20090311
  Transmission Date: 20090719
  Serious: Yes (Death, Other)
  Sender: FDA-Public Use
  Company Number: CA-BRISTOL-MYERS SQUIBB COMPANY-14539621

PATIENT
  Age: 51 Year
  Sex: Male
  Weight: 77 kg

DRUGS (5)
  1. CISPLATIN [Suspect]
     Indication: METASTATIC NEOPLASM
     Dosage: STARTED ON 20MAR2003
     Route: 042
     Dates: start: 20030407, end: 20030407
  2. TAXOL [Suspect]
  3. GEMCITABINE HCL [Suspect]
     Indication: METASTATIC NEOPLASM
     Dosage: STARTED ON 20MAR03; RECEIVED ON DAY 1, 8 AND DAY 15 OF EVERY 28 DAYS
     Route: 042
     Dates: start: 20030407, end: 20030407
  4. ADVIL [Concomitant]
     Indication: PAIN
     Dates: start: 20030201
  5. TYLENOL W/ CODEINE NO. 2 [Concomitant]
     Indication: PAIN
     Dates: start: 20030201

REACTIONS (6)
  - AREFLEXIA [None]
  - BLOOD CREATININE INCREASED [None]
  - CEREBRAL HAEMORRHAGE [None]
  - CEREBRAL INFARCTION [None]
  - HYPOTENSION [None]
  - SINUS BRADYCARDIA [None]
